FAERS Safety Report 9534794 (Version 2)
Quarter: 2013Q3

REPORT INFORMATION
  Report Type: Spontaneous
  Country: US (occurrence: US)
  Receive Date: 20130918
  Receipt Date: 20130918
  Transmission Date: 20140515
  Serious: Yes (Other)
  Sender: FDA-Public Use
  Company Number: US-NAPPMUNDI-USA-2011-0078054

PATIENT
  Age: 48 Year
  Sex: Male

DRUGS (2)
  1. BUTRANS [Suspect]
     Indication: BACK PAIN
     Dosage: 20 MCG/HR, UNK
     Route: 062
     Dates: start: 20111028
  2. SOMA [Concomitant]
     Indication: MUSCLE SPASMS
     Dosage: 350 MG, UNK

REACTIONS (6)
  - Application site burn [Recovering/Resolving]
  - Application site scar [Not Recovered/Not Resolved]
  - Application site vesicles [Recovering/Resolving]
  - Application site erythema [Recovering/Resolving]
  - Application site discharge [Recovering/Resolving]
  - Inadequate analgesia [Not Recovered/Not Resolved]
